FAERS Safety Report 7825588-X (Version None)
Quarter: 2011Q4

REPORT INFORMATION
  Report Type: 
  Country: None (occurrence: None)
  Receive Date: 20111019
  Receipt Date: 20111011
  Transmission Date: 20120403
  Serious: Yes (Other)
  Sender: FDA-Public Use
  Company Number: US-ALLERGAN-1113424US

PATIENT
  Age: 42 Year
  Sex: Female
  Weight: 70.748 kg

DRUGS (2)
  1. BOTULINUM TOXIN TYPE A [Suspect]
     Dosage: 20 UNITS, TWO TIMES A YEAR
     Route: 030
     Dates: start: 20080303, end: 20080303
  2. BOTULINUM TOXIN TYPE A [Suspect]
     Indication: SKIN WRINKLING
     Dosage: 20 UNK, SINGLE
     Route: 030
     Dates: start: 20090415, end: 20090415

REACTIONS (5)
  - DYSGEUSIA [None]
  - GINGIVAL RECESSION [None]
  - ORAL DISCHARGE [None]
  - SECRETION DISCHARGE [None]
  - LYMPHATIC DISORDER [None]
